FAERS Safety Report 4452915-6 (Version None)
Quarter: 2004Q3

REPORT INFORMATION
  Report Type: 
  Country: None (occurrence: None)
  Receive Date: 20040916
  Receipt Date: 20040902
  Transmission Date: 20050211
  Serious: Yes (Disabling)
  Sender: FDA-Public Use
  Company Number: 2004063582

PATIENT
  Age: 47 Year
  Sex: Female
  Weight: 86.1834 kg

DRUGS (4)
  1. LIPITOR [Suspect]
     Indication: BLOOD CHOLESTEROL
     Dosage: ORAL
     Route: 048
     Dates: start: 20030101, end: 20040801
  2. LANSOPRAZOLE [Concomitant]
  3. QUETIAPINE FUMARATE (QUETIAPINE FUMARATE) [Concomitant]
  4. VENLAFAXINE HCL [Concomitant]

REACTIONS (5)
  - ASTHENIA [None]
  - DIFFICULTY IN WALKING [None]
  - HYPOAESTHESIA [None]
  - MEDICATION ERROR [None]
  - PAIN IN EXTREMITY [None]
